FAERS Safety Report 12889872 (Version 3)
Quarter: 2016Q4

REPORT INFORMATION
  Report Type: Spontaneous
  Country: AR (occurrence: AR)
  Receive Date: 20161027
  Receipt Date: 20161226
  Transmission Date: 20170207
  Serious: Yes (Hospitalization, Other)
  Sender: FDA-Public Use
  Company Number: PHHY2016AR147699

PATIENT
  Age: 10 Year
  Sex: Male

DRUGS (2)
  1. ILARIS [Suspect]
     Active Substance: CANAKINUMAB
     Dosage: 100 MG, EVERY 6 WEEKS
     Route: 065
  2. ILARIS [Suspect]
     Active Substance: CANAKINUMAB
     Indication: HYPER IGD SYNDROME
     Dosage: 32 MG, EVERY 8 WEEKS
     Route: 065
     Dates: start: 20130218

REACTIONS (17)
  - Appendicitis [Recovered/Resolved]
  - Pneumonia [Unknown]
  - Pallor [Recovered/Resolved]
  - Product use issue [Unknown]
  - Pallor [Unknown]
  - Dyspnoea [Unknown]
  - Pyrexia [Unknown]
  - Pneumonia [Recovered/Resolved]
  - Depressed mood [Recovered/Resolved]
  - Depressed mood [Unknown]
  - Peritonitis [Recovered/Resolved]
  - Cough [Recovered/Resolved]
  - Abdominal pain [Recovered/Resolved]
  - Peritoneal adhesions [Recovered/Resolved]
  - Systemic mycosis [Unknown]
  - Pyrexia [Recovered/Resolved]
  - Bronchitis [Unknown]

NARRATIVE: CASE EVENT DATE: 20130218
